FAERS Safety Report 5644004-X (Version None)
Quarter: 2008Q1

REPORT INFORMATION
  Report Type: 
  Country: None (occurrence: None)
  Receive Date: 20080131
  Receipt Date: 20071226
  Transmission Date: 20080703
  Serious: Yes (Hospitalization)
  Sender: FDA-Public Use
  Company Number: 163-21880-07111164

PATIENT
  Age: 68 Year
  Sex: Female

DRUGS (2)
  1. REVLIMID [Suspect]
     Indication: LYMPHOPROLIFERATIVE DISORDER
     Dosage: 5 , 10 MG, QD 21/28 DAYS, ORAL
     Route: 048
     Dates: start: 20070705, end: 20070820
  2. REVLIMID [Suspect]
     Indication: LYMPHOPROLIFERATIVE DISORDER
     Dosage: 5 , 10 MG, QD 21/28 DAYS, ORAL
     Route: 048
     Dates: start: 20071029

REACTIONS (1)
  - THROMBOCYTOPENIA [None]
